FAERS Safety Report 14170606 (Version 1)
Quarter: 2017Q4

REPORT INFORMATION
  Report Type: Spontaneous
  Country: FR (occurrence: FR)
  Receive Date: 20171108
  Receipt Date: 20171108
  Transmission Date: 20180321
  Serious: Yes (Hospitalization, Other)
  Sender: FDA-Public Use
  Company Number: FR-BRISTOL-MYERS SQUIBB COMPANY-BMS-2017-100939

PATIENT
  Age: 59 Year
  Sex: Female

DRUGS (4)
  1. ALPRAZOLAM BIOGARAN [Suspect]
     Active Substance: ALPRAZOLAM
     Indication: DEPRESSION
     Dosage: UNK
     Route: 048
     Dates: end: 20170403
  2. METFORMIN HYDROCHLORIDE. [Suspect]
     Active Substance: METFORMIN HYDROCHLORIDE
     Indication: DIABETES MELLITUS
     Dosage: UNK
     Route: 048
     Dates: end: 20170403
  3. CLOMIPRAMINE [Suspect]
     Active Substance: CLOMIPRAMINE
     Indication: DEPRESSION
     Dosage: 1 DF, DAILY
     Route: 048
     Dates: start: 2005, end: 20170420
  4. RAMIPRIL/HYDROCHLOROTHIAZIDE BIOGARAN [Suspect]
     Active Substance: HYDROCHLOROTHIAZIDE\RAMIPRIL
     Indication: HYPERTENSION
     Dosage: 1 DF, DAILY
     Route: 048
     Dates: end: 20170403

REACTIONS (7)
  - Paranoia [None]
  - Acute kidney injury [Recovered/Resolved]
  - Left ventricular failure [Recovered/Resolved]
  - Withdrawal syndrome [None]
  - Cardiotoxicity [None]
  - Left ventricular hypertrophy [None]
  - Cardiorenal syndrome [Recovered/Resolved]

NARRATIVE: CASE EVENT DATE: 20170403
